FAERS Safety Report 12684733 (Version 5)
Quarter: 2016Q4

REPORT INFORMATION
  Report Type: Spontaneous
  Country: US (occurrence: US)
  Receive Date: 20160825
  Receipt Date: 20161017
  Transmission Date: 20170207
  Serious: No
  Sender: FDA-Public Use
  Company Number: US-GLAXOSMITHKLINE-US2016117362

PATIENT
  Age: 62 Year
  Sex: Male

DRUGS (6)
  1. OXYCONTIN [Concomitant]
     Active Substance: OXYCODONE HYDROCHLORIDE
  2. ADVAIR DISKUS [Suspect]
     Active Substance: FLUTICASONE PROPIONATE\SALMETEROL XINAFOATE
     Indication: CHRONIC OBSTRUCTIVE PULMONARY DISEASE
     Dosage: 1 PUFF(S), BID
     Route: 055
     Dates: start: 2011
  3. MOBIC [Concomitant]
     Active Substance: MELOXICAM
  4. SINGULAIR [Concomitant]
     Active Substance: MONTELUKAST SODIUM
  5. ASPIRIN. [Concomitant]
     Active Substance: ASPIRIN
  6. METFORMIN [Concomitant]
     Active Substance: METFORMIN HYDROCHLORIDE

REACTIONS (7)
  - Haemoptysis [Unknown]
  - Throat irritation [Unknown]
  - Product quality issue [Unknown]
  - Nasal discomfort [Unknown]
  - Insomnia [Unknown]
  - Diaphragmalgia [Unknown]
  - Cough [Unknown]

NARRATIVE: CASE EVENT DATE: 2016
